FAERS Safety Report 9238748 (Version 1)
Quarter: 2013Q1

REPORT INFORMATION
  Report Type: Spontaneous
  Country: US (occurrence: None)
  Receive Date: 20121106
  Receipt Date: 20121106
  Transmission Date: 20140127
  Serious: No
  Sender: FDA-Public Use
  Company Number: 100037575

PATIENT
  Age: 78 Year
  Sex: Female

DRUGS (10)
  1. DALIRESP [Suspect]
     Indication: CHRONIC OBSTRUCTIVE PULMONARY DISEASE
     Route: 048
     Dates: start: 201206, end: 20120802
  2. CYMBALTA(DULOXETINE HYDROCHLORIDE)(DULOXETINE HYDROCHLORIDE) [Concomitant]
  3. BENICAR(OLMESARTAN MEDOXOMIL)(OLMESARTAN MEDOXOMIL) [Concomitant]
  4. MUCINEX(GUAIFENESIN)(GUAIFENESIN) [Concomitant]
  5. SYMBICORT(BUDESONIDE, FORMOTEROL)(BUDESONIDE, FORMOTEROL) [Concomitant]
  6. SINGULAIR [Concomitant]
  7. ASPIRIN(ACETYLSALICYLIC ACID)(ACETYLSALICYLIC ACID) [Concomitant]
  8. TRAZODONE(TRAZODONE)(TRAZODONE) [Concomitant]
  9. SLO-NIACIN(NICOTINIC ACID)(NICOTINIC ACID) [Concomitant]
  10. ALLERGY RELIEF(LORATADINE)(LORATADINE) [Concomitant]

REACTIONS (7)
  - Depression [None]
  - Insomnia [None]
  - Anxiety [None]
  - Diarrhoea [None]
  - Dizziness [None]
  - Back pain [None]
  - Headache [None]
